FAERS Safety Report 10869160 (Version 6)
Quarter: 2015Q4

REPORT INFORMATION
  Report Type: Spontaneous
  Country: IT (occurrence: IT)
  Receive Date: 20150225
  Receipt Date: 20151230
  Transmission Date: 20160304
  Serious: Yes (Hospitalization, Other)
  Sender: FDA-Public Use
  Company Number: IT-GILEAD-2015-0138115

PATIENT
  Age: 47 Year
  Sex: Male

DRUGS (4)
  1. REBETOL [Suspect]
     Active Substance: RIBAVIRIN
     Dosage: 200 MG, QD
     Route: 048
     Dates: start: 20141024
  2. REBETOL [Suspect]
     Active Substance: RIBAVIRIN
     Dosage: 1000 MG, QD
     Route: 048
  3. REBETOL [Suspect]
     Active Substance: RIBAVIRIN
     Indication: HEPATITIS C
     Dosage: 400 MG, QD
     Route: 048
     Dates: start: 20141002, end: 20141017
  4. SOVALDI [Suspect]
     Active Substance: SOFOSBUVIR
     Indication: CHRONIC HEPATITIS C
     Dosage: 400 MG, QD
     Route: 048
     Dates: start: 20141002, end: 20150131

REACTIONS (5)
  - Cholelithiasis [Recovered/Resolved]
  - Pancreatitis [Recovered/Resolved]
  - Abdominal pain [Recovered/Resolved]
  - Drug ineffective [Unknown]
  - Viral load increased [Unknown]

NARRATIVE: CASE EVENT DATE: 20141013
